FAERS Safety Report 5995740-7 (Version None)
Quarter: 2008Q4

REPORT INFORMATION
  Report Type: 
  Country: None (occurrence: None)
  Receive Date: 20081212
  Receipt Date: 20081201
  Transmission Date: 20090506
  Serious: Yes (Other)
  Sender: FDA-Public Use
  Company Number: US-PFIZER INC-2008099604

PATIENT
  Sex: Female
  Weight: 87.1 kg

DRUGS (1)
  1. CHANTIX [Suspect]
     Dosage: UNK
     Route: 048
     Dates: start: 20081101

REACTIONS (2)
  - DEPRESSION [None]
  - HOMICIDAL IDEATION [None]
